FAERS Safety Report 17685710 (Version 1)
Quarter: 2020Q2

REPORT INFORMATION
  Report Type: Spontaneous
  Country: US (occurrence: US)
  Receive Date: 20200420
  Receipt Date: 20200420
  Transmission Date: 20200714
  Serious: No
  Sender: FDA-Public Use
  Company Number: US-BIOGEN-2020BI00862818

PATIENT
  Sex: Female
  Weight: 59.47 kg

DRUGS (1)
  1. TECFIDERA [Suspect]
     Active Substance: DIMETHYL FUMARATE
     Indication: MULTIPLE SCLEROSIS
     Route: 048
     Dates: start: 20200331

REACTIONS (10)
  - Gait inability [Unknown]
  - Memory impairment [Unknown]
  - Mobility decreased [Unknown]
  - Loss of personal independence in daily activities [Unknown]
  - Eye pruritus [Unknown]
  - Gastric disorder [Unknown]
  - Panic attack [Unknown]
  - Loss of control of legs [Unknown]
  - Vision blurred [Unknown]
  - Abdominal pain upper [Unknown]
